FAERS Safety Report 7047400-1 (Version None)
Quarter: 2010Q4

REPORT INFORMATION
  Report Type: 
  Country: None (occurrence: None)
  Receive Date: 20101015
  Receipt Date: 20101008
  Transmission Date: 20110411
  Serious: Yes (Hospitalization)
  Sender: FDA-Public Use
  Company Number: FR-ROCHE-732306

PATIENT
  Sex: Female

DRUGS (5)
  1. AVASTIN [Suspect]
     Indication: BREAST CANCER
     Route: 042
     Dates: start: 20100917, end: 20100917
  2. TAXOTERE [Suspect]
     Indication: BREAST CANCER
     Dosage: INFUSION
     Route: 042
     Dates: start: 20100917, end: 20100917
  3. FLUOROURACIL [Suspect]
     Indication: BREAST CANCER
     Dosage: DRUG AS: FLUOROURACILE WINTHROP
     Route: 042
     Dates: start: 20100917, end: 20100919
  4. NOLVADEX [Concomitant]
     Dates: start: 20050101
  5. ARIMIDEX [Concomitant]

REACTIONS (3)
  - DIARRHOEA [None]
  - MUCOSAL INFLAMMATION [None]
  - NEUTROPENIA [None]
